FAERS Safety Report 18794766 (Version 3)
Quarter: 2021Q4

REPORT INFORMATION
  Report Type: Spontaneous
  Country: IR (occurrence: IR)
  Receive Date: 20210127
  Receipt Date: 20211123
  Transmission Date: 20220303
  Serious: Yes (Life-Threatening, Hospitalization, Other)
  Sender: FDA-Public Use
  Company Number: IR-MLMSERVICE-20210114-2676724-1

PATIENT
  Age: 30 Year
  Sex: Female

DRUGS (1)
  1. METHOTREXATE SODIUM [Suspect]
     Active Substance: METHOTREXATE SODIUM
     Indication: Ectopic pregnancy
     Dosage: 80 MG, SINGLE (50 MG/M2)
     Route: 030

REACTIONS (20)
  - Toxicity to various agents [Recovered/Resolved]
  - Myelosuppression [Recovered/Resolved]
  - Depressed level of consciousness [Recovered/Resolved]
  - Drug level increased [Recovered/Resolved]
  - Multi-organ disorder [Recovered/Resolved]
  - Pancytopenia [Recovered/Resolved]
  - Neurotoxicity [Recovered/Resolved]
  - Pseudomonas infection [Recovered/Resolved]
  - Blood creatinine increased [Recovered/Resolved]
  - Myelosuppression [Recovered/Resolved]
  - Septic shock [Recovered/Resolved]
  - Drug hypersensitivity [Recovered/Resolved]
  - Hypernatraemia [Recovered/Resolved]
  - Alopecia [Recovered/Resolved]
  - Nausea [Recovered/Resolved]
  - Rash pustular [Recovered/Resolved]
  - Vomiting [Recovered/Resolved]
  - Dehydration [Recovered/Resolved]
  - Skin hyperpigmentation [Recovered/Resolved]
  - Mouth ulceration [Recovered/Resolved]
